FAERS Safety Report 19725294 (Version 1)
Quarter: 2021Q3

REPORT INFORMATION
  Report Type: Spontaneous
  Country: US (occurrence: US)
  Receive Date: 20210820
  Receipt Date: 20210820
  Transmission Date: 20211014
  Serious: Yes (Other)
  Sender: FDA-Public Use
  Company Number: US-GLENMARK PHARMACEUTICALS-2021GMK067353

PATIENT
  Age: 11 Year
  Sex: Female

DRUGS (4)
  1. LEVONORGESTREL. [Suspect]
     Active Substance: LEVONORGESTREL
     Indication: HEAVY MENSTRUAL BLEEDING
     Dosage: UNK
     Route: 065
  2. ETONOGESTREL [Concomitant]
     Active Substance: ETONOGESTREL
     Indication: PRODUCT USED FOR UNKNOWN INDICATION
     Dosage: UNK
     Route: 065
  3. NORETHINDRONE. [Suspect]
     Active Substance: NORETHINDRONE
     Indication: HEAVY MENSTRUAL BLEEDING
     Dosage: UNK, TID
     Route: 048
  4. PROGESTIN [Concomitant]
     Active Substance: PROGESTERONE
     Indication: PRODUCT USED FOR UNKNOWN INDICATION
     Dosage: UNK
     Route: 065

REACTIONS (4)
  - Shock haemorrhagic [Unknown]
  - Withdrawal bleed [Unknown]
  - Hepatic adenoma [Unknown]
  - Vaginal haemorrhage [Unknown]
